FAERS Safety Report 5200880-6 (Version None)
Quarter: 2007Q1

REPORT INFORMATION
  Report Type: 
  Country: None (occurrence: None)
  Receive Date: 20070103
  Receipt Date: 20061221
  Transmission Date: 20070707
  Serious: Yes (Other)
  Sender: FDA-Public Use
  Company Number: 2006US002975

PATIENT
  Sex: 0

DRUGS (1)
  1. TACROLIMUS (TACROLIMUS)CAPSULE [Suspect]
     Indication: DRUG USE FOR UNKNOWN INDICATION
     Dosage: ORAL
     Route: 048

REACTIONS (1)
  - KAPOSI'S SARCOMA [None]
